FAERS Safety Report 10094920 (Version 1)
Quarter: 2014Q2

REPORT INFORMATION
  Report Type: Spontaneous
  Country: US (occurrence: US)
  Receive Date: 20140422
  Receipt Date: 20140422
  Transmission Date: 20141212
  Serious: No
  Sender: FDA-Public Use
  Company Number: US-BAUSCH-BL-2014-000445

PATIENT
  Sex: Female

DRUGS (1)
  1. PROLENSA (BROMFENAC OPHTHALMIC SOLUTION) 0.07% [Suspect]
     Indication: PRODUCT USED FOR UNKNOWN INDICATION
     Dosage: UNKNOWN
     Route: 047
     Dates: start: 2013

REACTIONS (1)
  - Abnormal sensation in eye [Unknown]
